FAERS Safety Report 5814643-1 (Version None)
Quarter: 2008Q3

REPORT INFORMATION
  Report Type: 
  Country: None (occurrence: None)
  Receive Date: 20080718
  Receipt Date: 20070718
  Transmission Date: 20090109
  Serious: No
  Sender: FDA-Public Use
  Company Number: US-KINGPHARMUSA00001-K200700908

PATIENT

DRUGS (2)
  1. LEVOXYL [Suspect]
     Indication: HYPOTHYROIDISM
     Dosage: 25 MCG, QD
     Route: 048
     Dates: start: 20000101
  2. ZOCOR [Concomitant]
     Dosage: 20 MG, AT NIGHT
     Route: 048

REACTIONS (3)
  - DYSPNOEA [None]
  - PALPITATIONS [None]
  - PSYCHOMOTOR HYPERACTIVITY [None]
